FAERS Safety Report 4706139-5 (Version None)
Quarter: 2005Q2

REPORT INFORMATION
  Report Type: 
  Country: None (occurrence: None)
  Receive Date: 20050627
  Receipt Date: 20040706
  Transmission Date: 20051028
  Serious: Yes (Other)
  Sender: FDA-Public Use
  Company Number: US-JNJFOC-20040504059

PATIENT
  Age: 79 Year
  Sex: Female
  Weight: 69.4003 kg

DRUGS (14)
  1. DURAGESIC-100 [Suspect]
     Indication: PAIN
     Dosage: 25 UG/HR, 1 IN 72 HOUR, TRANSDERMAL
     Route: 062
     Dates: start: 20040507, end: 20040516
  2. COUMADIN [Concomitant]
  3. METOPROLOL TARTRATE [Concomitant]
  4. AVAPRO [Concomitant]
  5. NORVASC [Concomitant]
  6. HYDROCHLOROTHIAZIDE [Concomitant]
  7. CLARINEX [Concomitant]
  8. FOSAMAX [Concomitant]
  9. STOOL SOFTENER (DOCUSATE SODIUM) [Concomitant]
  10. PERDIEM (PERDIEM) [Concomitant]
  11. ZOCOR [Concomitant]
  12. TYLENOL [Concomitant]
  13. VITAMINS (VITAMINS) [Concomitant]
  14. . [Concomitant]

REACTIONS (12)
  - ANXIETY [None]
  - BLOOD PRESSURE INCREASED [None]
  - CONFUSIONAL STATE [None]
  - DIZZINESS [None]
  - DRY MOUTH [None]
  - HALLUCINATION [None]
  - HEART RATE INCREASED [None]
  - HYPERSOMNIA [None]
  - MALAISE [None]
  - SOMNOLENCE [None]
  - TREMOR [None]
  - VOMITING [None]
